FAERS Safety Report 10240279 (Version 3)
Quarter: 2014Q2

REPORT INFORMATION
  Report Type: Spontaneous
  Country: JP (occurrence: JP)
  Receive Date: 20140617
  Receipt Date: 20140627
  Transmission Date: 20141212
  Serious: Yes (Life-Threatening)
  Sender: FDA-Public Use
  Company Number: PHHY2014JP069772

PATIENT
  Age: 52 Year
  Sex: Male
  Weight: 53 kg

DRUGS (2)
  1. CLOZARIL [Suspect]
     Indication: SCHIZOPHRENIA
     Dosage: 125 MG, DAILY
     Route: 048
     Dates: start: 20140515, end: 20140530
  2. LIMAS [Concomitant]
     Dosage: UNK

REACTIONS (6)
  - Pericardial effusion [Not Recovered/Not Resolved]
  - Troponin T increased [Recovered/Resolved]
  - Pleurisy [Recovering/Resolving]
  - Malaise [Recovered/Resolved]
  - Pyrexia [Recovered/Resolved]
  - Pericarditis [Not Recovered/Not Resolved]
